FAERS Safety Report 4999807-1 (Version None)
Quarter: 2006Q2

REPORT INFORMATION
  Report Type: 
  Country: None (occurrence: None)
  Receive Date: 20060510
  Receipt Date: 20060510
  Transmission Date: 20061013
  Serious: Yes (Other)
  Sender: FDA-Public Use
  Company Number: None

PATIENT
  Age: 62 Year
  Sex: Male
  Weight: 90.7194 kg

DRUGS (1)
  1. CITALOPRAM  20 AND 40 MG.  DR. REDDY [Suspect]
     Indication: DEPRESSION
     Dosage: 30 MG DAILY PO
     Route: 048
     Dates: start: 20000201, end: 20060515

REACTIONS (1)
  - PHARMACEUTICAL PRODUCT COMPLAINT [None]
